FAERS Safety Report 12776420 (Version 1)
Quarter: 2016Q3

REPORT INFORMATION
  Report Type: Report from Study
  Country: US (occurrence: US)
  Receive Date: 20160923
  Receipt Date: 20160923
  Transmission Date: 20161109
  Serious: Yes (Hospitalization)
  Sender: FDA-Public Use
  Company Number: US-ABBVIE-16P-163-1698882-00

PATIENT
  Age: 39 Year
  Sex: Female

DRUGS (9)
  1. MULTIVITAMIN [Concomitant]
     Active Substance: VITAMINS
     Indication: VITAMIN SUPPLEMENTATION
     Route: 048
  2. VITAMIN B12 [Concomitant]
     Active Substance: CYANOCOBALAMIN
     Indication: VITAMIN SUPPLEMENTATION
     Route: 048
  3. LUPRON DEPOT [Suspect]
     Active Substance: LEUPROLIDE ACETATE
     Indication: ENDOMETRIOSIS
     Route: 050
     Dates: start: 20160702, end: 20160810
  4. LUPRON DEPOT [Suspect]
     Active Substance: LEUPROLIDE ACETATE
     Indication: ADENOMYOSIS
  5. LEXAPRO [Concomitant]
     Active Substance: ESCITALOPRAM OXALATE
     Indication: MUSCLE SPASMS
     Route: 048
     Dates: start: 201601
  6. NORETHINDRONE ACETATE. [Concomitant]
     Active Substance: NORETHINDRONE ACETATE
     Indication: PRODUCT USED FOR UNKNOWN INDICATION
     Route: 048
     Dates: start: 20160707
  7. VALIUM [Concomitant]
     Active Substance: DIAZEPAM
     Indication: BLADDER SPASM
     Route: 048
  8. LUPRON DEPOT [Suspect]
     Active Substance: LEUPROLIDE ACETATE
     Indication: UTERINE POLYP
  9. OXYCODONE [Concomitant]
     Active Substance: OXYCODONE
     Indication: PELVIC PAIN
     Route: 048

REACTIONS (11)
  - Hypertension [Recovered/Resolved]
  - Pelvic pain [Not Recovered/Not Resolved]
  - Crying [Recovered/Resolved]
  - Cystitis [Recovered/Resolved]
  - Dehydration [Unknown]
  - Anxiety [Unknown]
  - Drug ineffective [Recovered/Resolved]
  - Mood swings [Not Recovered/Not Resolved]
  - Depression [Recovered/Resolved]
  - Abdominal pain [Recovered/Resolved]
  - Kidney infection [Recovered/Resolved]

NARRATIVE: CASE EVENT DATE: 20160702
